FAERS Safety Report 19395196 (Version 2)
Quarter: 2021Q2

REPORT INFORMATION
  Report Type: Report from Study
  Country: FR (occurrence: FR)
  Receive Date: 20210609
  Receipt Date: 20210622
  Transmission Date: 20210717
  Serious: No
  Sender: FDA-Public Use
  Company Number: FR-PFIZER INC-2021606416

PATIENT
  Sex: Male

DRUGS (1)
  1. SUNITINIB MALATE. [Suspect]
     Active Substance: SUNITINIB MALATE
     Dosage: 50 MG 2 WEEKS/3
     Dates: start: 201707, end: 201911

REACTIONS (1)
  - Bronchial hyperreactivity [Recovering/Resolving]

NARRATIVE: CASE EVENT DATE: 20200216
